FAERS Safety Report 18691999 (Version 1)
Quarter: 2021Q1

REPORT INFORMATION
  Report Type: Spontaneous
  Country: CA (occurrence: CA)
  Receive Date: 20210102
  Receipt Date: 20210102
  Transmission Date: 20210419
  Serious: Yes (Life-Threatening, Hospitalization, Other)
  Sender: FDA-Public Use
  Company Number: CA-ACCORD-212896

PATIENT
  Age: 59 Year
  Sex: Male
  Weight: 72.57 kg

DRUGS (17)
  1. AVAPRO [Concomitant]
     Active Substance: IRBESARTAN
  2. CLINDAMYCIN. [Concomitant]
     Active Substance: CLINDAMYCIN
  3. LANTUS [Concomitant]
     Active Substance: INSULIN GLARGINE
     Dosage: DOSAGE FORM: SOLUTION SUBCUTANEUS
     Route: 058
  4. HYDROXYCHLOROQUINE [Concomitant]
     Active Substance: HYDROXYCHLOROQUINE
     Dosage: HYDROXYQUINE
  5. DILTIAZEM. [Concomitant]
     Active Substance: DILTIAZEM
  6. FOLIC ACID. [Concomitant]
     Active Substance: FOLIC ACID
  7. LYRICA [Concomitant]
     Active Substance: PREGABALIN
  8. METHOTREXATE. [Suspect]
     Active Substance: METHOTREXATE
     Indication: POLYARTHRITIS
     Dosage: FREQUENCY: 2 EVERY 1 WEEKS, STRENGTH: 10 MG, USP
     Route: 048
  9. CRESTOR [Concomitant]
     Active Substance: ROSUVASTATIN CALCIUM
  10. BENZYDAMINE [Concomitant]
     Active Substance: BENZYDAMINE
     Dosage: DOSAGE FORM: SOLUTION BUCCAL
     Route: 002
  11. FLOVENT [Concomitant]
     Active Substance: FLUTICASONE PROPIONATE
  12. METHOTREXATE. [Concomitant]
     Active Substance: METHOTREXATE
  13. ADALAT XL ? SRT [Concomitant]
  14. ACETYLSALICYLIC ACID [Concomitant]
     Active Substance: ASPIRIN
  15. JANUMET [Concomitant]
     Active Substance: METFORMIN HYDROCHLORIDE\SITAGLIPTIN PHOSPHATE
  16. TECTA [Concomitant]
     Active Substance: PANTOPRAZOLE MAGNESIUM
  17. VENTOLIN [Concomitant]
     Active Substance: ALBUTEROL SULFATE

REACTIONS (17)
  - Dermatitis bullous [Unknown]
  - Pancytopenia [Unknown]
  - Dehydration [Unknown]
  - Oedema mucosal [Unknown]
  - Cough [Unknown]
  - Oedema mouth [Unknown]
  - Oral pain [Unknown]
  - Pyrexia [Unknown]
  - Stomatitis [Unknown]
  - Blood creatinine abnormal [Unknown]
  - Blood potassium abnormal [Unknown]
  - C-reactive protein increased [Unknown]
  - Red blood cell sedimentation rate increased [Unknown]
  - SARS-CoV-2 test negative [Unknown]
  - Bronchitis pneumococcal [Unknown]
  - Asthenia [Unknown]
  - Blood urea abnormal [Unknown]
